FAERS Safety Report 8339252-4 (Version None)
Quarter: 2012Q2

REPORT INFORMATION
  Report Type: 
  Country: None (occurrence: None)
  Receive Date: 20120507
  Receipt Date: 20120423
  Transmission Date: 20120825
  Serious: Yes (Hospitalization, Other)
  Sender: FDA-Public Use
  Company Number: CA-JNJFOC-20120410723

PATIENT
  Sex: Female
  Weight: 3.04 kg

DRUGS (1)
  1. REMICADE [Suspect]
     Indication: EXPOSURE VIA FATHER
     Route: 064
     Dates: start: 20090304

REACTIONS (2)
  - LISTLESS [None]
  - PREMATURE BABY [None]
